FAERS Safety Report 4713688-2 (Version None)
Quarter: 2005Q3

REPORT INFORMATION
  Report Type: 
  Country: None (occurrence: None)
  Receive Date: 20050712
  Receipt Date: 20050623
  Transmission Date: 20060218
  Serious: Yes (Other)
  Sender: FDA-Public Use
  Company Number: USA0506100870

PATIENT
  Age: 51 Year
  Sex: Male

DRUGS (2)
  1. CIALIS [Suspect]
     Indication: ERECTILE DYSFUNCTION
     Dosage: 10 MG
  2. INSULIN    /00030501/ [Concomitant]

REACTIONS (11)
  - AMNESIA [None]
  - ASTHENIA [None]
  - CHROMATOPSIA [None]
  - CONVULSION [None]
  - DYSKINESIA [None]
  - FEELING ABNORMAL [None]
  - HYPERSOMNIA [None]
  - MUSCLE SPASMS [None]
  - NECK PAIN [None]
  - SHOULDER PAIN [None]
  - UNEVALUABLE EVENT [None]
